FAERS Safety Report 24767270 (Version 1)
Quarter: 2024Q4

REPORT INFORMATION
  Report Type: Spontaneous
  Country: FR (occurrence: FR)
  Receive Date: 20241223
  Receipt Date: 20241223
  Transmission Date: 20250114
  Serious: Yes (Hospitalization, Other)
  Sender: FRESENIUS KABI
  Company Number: None

PATIENT
  Age: 30 Year
  Sex: Female
  Weight: 61 kg

DRUGS (6)
  1. ROPIVACAINE HYDROCHLORIDE [Suspect]
     Active Substance: ROPIVACAINE HYDROCHLORIDE
     Indication: Delivery
     Dosage: ROA: EPIDURAL
     Dates: start: 20241114, end: 20241114
  2. LIDOCAINE HYDROCHLORIDE\NAPHAZOLINE NITRATE [Suspect]
     Active Substance: LIDOCAINE HYDROCHLORIDE\NAPHAZOLINE NITRATE
     Indication: Local anaesthesia
     Dosage: ROA: VAGINAL
     Dates: start: 20241114, end: 20241114
  3. XYLOCAINE [Suspect]
     Active Substance: LIDOCAINE HYDROCHLORIDE
     Indication: Delivery
     Dosage: ROA: SUBCUTANEOUS
     Dates: start: 20241114, end: 20241114
  4. EPINEPHRINE BITARTRATE\LIDOCAINE HYDROCHLORIDE [Suspect]
     Active Substance: EPINEPHRINE BITARTRATE\LIDOCAINE HYDROCHLORIDE
     Indication: Delivery
     Dosage: DOSAGE FORM: INJECTION?ROA: EPIDURAL
     Dates: start: 20241114, end: 20241114
  5. EPINEPHRINE BITARTRATE\LIDOCAINE HYDROCHLORIDE [Suspect]
     Active Substance: EPINEPHRINE BITARTRATE\LIDOCAINE HYDROCHLORIDE
     Dosage: DOSAGE FORM: INJECTION?ROA: EPIDURAL
     Dates: start: 20241114, end: 20241114
  6. ONDANSETRON [Concomitant]
     Active Substance: ONDANSETRON
     Indication: Product used for unknown indication
     Dosage: ROA: INTRAVENOUS
     Dates: start: 20241114, end: 20241114

REACTIONS (4)
  - Anaesthetic complication neurological [Recovered/Resolved]
  - Anaesthetic complication [Recovered/Resolved]
  - Horner^s syndrome [Recovered/Resolved]
  - Motor dysfunction [Recovered/Resolved]

NARRATIVE: CASE EVENT DATE: 20241114
